FAERS Safety Report 4866205-0 (Version None)
Quarter: 2005Q4

REPORT INFORMATION
  Report Type: 
  Country: None (occurrence: None)
  Receive Date: 20051221
  Receipt Date: 20051213
  Transmission Date: 20060501
  Serious: Yes (Death)
  Sender: FDA-Public Use
  Company Number: 163-20785-05110208

PATIENT
  Age: 81 Year
  Sex: Female

DRUGS (3)
  1. THALOMID [Suspect]
     Indication: MULTIPLE MYELOMA
     Dosage: 50 MG, DAILY THEN TO EVERY OTHER
     Dates: start: 20040201, end: 20050501
  2. ARIMIDEX (ANASTROLOLE) [Concomitant]
  3. INSULIN [Concomitant]

REACTIONS (2)
  - BREAST CANCER FEMALE [None]
  - COLON CANCER RECURRENT [None]
